FAERS Safety Report 16717380 (Version 3)
Quarter: 2019Q3

REPORT INFORMATION
  Report Type: Spontaneous
  Country: US (occurrence: US)
  Receive Date: 20190819
  Receipt Date: 20190910
  Transmission Date: 20191005
  Serious: No
  Sender: FDA-Public Use
  Company Number: US-CELGENEUS-USA-20190804951

PATIENT
  Age: 71 Year
  Sex: Male

DRUGS (24)
  1. ABRAXANE [Suspect]
     Active Substance: PACLITAXEL
     Dosage: 189 MILLIGRAM
     Route: 042
     Dates: start: 20190801, end: 20190801
  2. PARACETAMOL [Concomitant]
     Active Substance: ACETAMINOPHEN
     Indication: PYREXIA
     Dosage: 325 MILLIGRAM
     Route: 048
     Dates: start: 20190718
  3. ABRAXANE [Suspect]
     Active Substance: PACLITAXEL
     Dosage: 189 MILLIGRAM
     Route: 042
     Dates: start: 20190725, end: 20190725
  4. PROCHLORPERAZINE MALEATE. [Concomitant]
     Active Substance: PROCHLORPERAZINE MALEATE
     Indication: NAUSEA
     Dosage: 15 MILLIGRAM
     Route: 048
     Dates: start: 20190705
  5. FENOFIBRATE. [Concomitant]
     Active Substance: FENOFIBRATE
     Indication: HYPERLIPIDAEMIA
     Dosage: 160 MILLIGRAM
     Route: 048
     Dates: start: 2013
  6. PROMETHAZINE [Concomitant]
     Active Substance: PROMETHAZINE HYDROCHLORIDE
     Indication: NAUSEA
     Dosage: 25 MILLIGRAM
     Route: 048
     Dates: start: 20190705
  7. VILANTEROL TRIFENATATE [Concomitant]
     Active Substance: VILANTEROL TRIFENATATE
     Indication: CHRONIC OBSTRUCTIVE PULMONARY DISEASE
     Dosage: 1 PUFF
     Route: 055
     Dates: start: 20190701
  8. PARACETAMOL [Concomitant]
     Active Substance: ACETAMINOPHEN
     Indication: OSTEOARTHRITIS
     Dosage: 325 MILLIGRAM
     Route: 048
     Dates: start: 20190718
  9. ABRAXANE [Suspect]
     Active Substance: PACLITAXEL
     Dosage: 189 MILLIGRAM
     Route: 042
     Dates: start: 20190718, end: 20190718
  10. LOPERAMIDE HYDROCHLORIDE. [Concomitant]
     Active Substance: LOPERAMIDE HYDROCHLORIDE
     Indication: DIARRHOEA
     Route: 048
     Dates: start: 20190711
  11. ABRAXANE [Suspect]
     Active Substance: PACLITAXEL
     Indication: NON-SMALL CELL LUNG CANCER
     Dosage: 189 MILLIGRAM
     Route: 042
     Dates: start: 20190711, end: 20190711
  12. ABRAXANE [Suspect]
     Active Substance: PACLITAXEL
     Dosage: 189 MILLIGRAM
     Route: 042
     Dates: start: 20190815, end: 20190815
  13. ONDANSETRON HYDROCHLORIDE. [Concomitant]
     Active Substance: ONDANSETRON HYDROCHLORIDE
     Indication: NAUSEA
     Dosage: 24 MILLIGRAM
     Route: 048
     Dates: start: 20190705
  14. CARBOPLATIN. [Suspect]
     Active Substance: CARBOPLATIN
     Dosage: 954 MILLIGRAM
     Route: 042
     Dates: start: 20190801, end: 20190801
  15. MEDI4736 (DURVALUMAB) [Suspect]
     Active Substance: DURVALUMAB
     Indication: NON-SMALL CELL LUNG CANCER
     Dosage: 3000 MILLIGRAM
     Route: 042
     Dates: start: 20190711, end: 20190711
  16. MEDI4736 (DURVALUMAB) [Suspect]
     Active Substance: DURVALUMAB
     Dosage: 3000 MILLIGRAM
     Route: 042
     Dates: start: 20190801, end: 20190801
  17. AMLODIPINE [Concomitant]
     Active Substance: AMLODIPINE BESYLATE
     Indication: HYPERTENSION
     Dosage: 10 MILLIGRAM
     Route: 048
     Dates: start: 2013
  18. METFORMIN [Concomitant]
     Active Substance: METFORMIN HYDROCHLORIDE
     Indication: DIABETES MELLITUS
     Dosage: 2000 MILLIGRAM
     Route: 048
     Dates: start: 2013
  19. PARACETAMOL [Concomitant]
     Active Substance: ACETAMINOPHEN
     Indication: OSTEOARTHRITIS
     Dosage: 325 MILLIGRAM
     Route: 048
     Dates: start: 20190714
  20. ABRAXANE [Suspect]
     Active Substance: PACLITAXEL
     Dosage: 189 MILLIGRAM
     Route: 042
     Dates: start: 20190808, end: 20190808
  21. CARBOPLATIN. [Suspect]
     Active Substance: CARBOPLATIN
     Indication: NON-SMALL CELL LUNG CANCER
     Dosage: 954 MILLIGRAM
     Route: 042
     Dates: start: 20190711, end: 20190711
  22. PANTOPRAZOLE [Concomitant]
     Active Substance: PANTOPRAZOLE
     Indication: GASTROOESOPHAGEAL REFLUX DISEASE
     Dosage: 40 MILLIGRAM
     Route: 048
     Dates: start: 2013
  23. COLESEVELAM HYDROCHLORIDE. [Concomitant]
     Active Substance: COLESEVELAM HYDROCHLORIDE
     Indication: HYPERLIPIDAEMIA
     Dosage: 3.75 GRAM
     Route: 048
     Dates: start: 20190705
  24. PARACETAMOL [Concomitant]
     Active Substance: ACETAMINOPHEN
     Indication: PYREXIA
     Dosage: 325 MILLIGRAM
     Route: 048
     Dates: start: 20190714

REACTIONS (1)
  - Hypomagnesaemia [Recovered/Resolved]

NARRATIVE: CASE EVENT DATE: 20190801
